FAERS Safety Report 14609305 (Version 1)
Quarter: 2018Q1

REPORT INFORMATION
  Report Type: Spontaneous
  Country: US (occurrence: US)
  Receive Date: 20180307
  Receipt Date: 20180307
  Transmission Date: 20180509
  Serious: Yes (Other)
  Sender: FDA-Public Use
  Company Number: PHEH2018US007967

PATIENT
  Sex: Female

DRUGS (2)
  1. IBRANCE [Suspect]
     Active Substance: PALBOCICLIB
     Indication: PRODUCT USED FOR UNKNOWN INDICATION
     Route: 065
  2. LETROZOLE. [Suspect]
     Active Substance: LETROZOLE
     Indication: PRODUCT USED FOR UNKNOWN INDICATION
     Route: 065

REACTIONS (11)
  - Sternal fracture [Unknown]
  - Alopecia [Unknown]
  - Dizziness [Unknown]
  - Metastases to chest wall [Unknown]
  - Metastases to bone [Unknown]
  - Malaise [Unknown]
  - Neutropenia [Unknown]
  - Nausea [Unknown]
  - White blood cell count decreased [Unknown]
  - Metastases to lung [Unknown]
  - Full blood count decreased [Unknown]
